FAERS Safety Report 6369921-7 (Version None)
Quarter: 2009Q3

REPORT INFORMATION
  Report Type: 
  Country: None (occurrence: None)
  Receive Date: 20090923
  Receipt Date: 20070904
  Transmission Date: 20100115
  Serious: No
  Sender: FDA-Public Use
  Company Number: US-ASTRAZENECA-2006UW11344

PATIENT
  Age: 9198 Day
  Sex: Female
  Weight: 99.8 kg

DRUGS (15)
  1. SEROQUEL [Suspect]
     Indication: SCHIZOPHRENIA, PARANOID TYPE
     Route: 048
     Dates: start: 20020401
  2. SEROQUEL [Suspect]
     Route: 048
     Dates: start: 20020401
  3. SEROQUEL [Suspect]
     Dosage: 50 MG-900 MG
     Route: 048
     Dates: start: 20031014
  4. TRAZODONE HYDROCHLORIDE [Concomitant]
  5. PROZAC [Concomitant]
  6. HYDROCODONE BITARTRATE [Concomitant]
  7. ABILIFY [Concomitant]
  8. ZYPREXA [Concomitant]
  9. DEPAKOTE ER [Concomitant]
  10. WELLBUTRIN [Concomitant]
  11. REMERON [Concomitant]
  12. RISPERDAL [Concomitant]
  13. LAMICTAL [Concomitant]
  14. AMBIEN [Concomitant]
  15. GEODON [Concomitant]

REACTIONS (2)
  - DIABETES MELLITUS [None]
  - GESTATIONAL DIABETES [None]
